FAERS Safety Report 8323192 (Version 7)
Quarter: 2012Q4

REPORT INFORMATION
  Report Type: 
  Country: GB (occurrence: GB)
  Receive Date: 20120105
  Receipt Date: 20121109
  Transmission Date: 20130627
  Serious: Yes (Hospitalization, Other)
  Sender: FDA-Public Use
  Company Number: GB-PFIZER INC-2012000130

PATIENT
  Age: 1 Year
  Sex: Male
  Weight: 13 kg

DRUGS (2)
  1. REFACTO AF [Suspect]
     Indication: HAEMOPHILIA A
     Dosage: 500 IU once weekly (250 IU unit dose)
     Route: 040
     Dates: start: 20110421, end: 20111109
  2. REFACTO AF [Suspect]
     Indication: PROPHYLAXIS

REACTIONS (3)
  - Factor VIII inhibition [Recovered/Resolved]
  - Haemorrhage [Recovered/Resolved]
  - Injury [Unknown]
